FAERS Safety Report 13082564 (Version 2)
Quarter: 2017Q1

REPORT INFORMATION
  Report Type: Spontaneous
  Country: US (occurrence: US)
  Receive Date: 20170103
  Receipt Date: 20170322
  Transmission Date: 20170428
  Serious: Yes (Other)
  Sender: FDA-Public Use
  Company Number: US-CELGENEUS-USA-2016127465

PATIENT
  Age: 55 Year
  Sex: Female

DRUGS (2)
  1. REVLIMID [Suspect]
     Active Substance: LENALIDOMIDE
     Dosage: 25 MG
     Route: 048
     Dates: start: 20161215
  2. REVLIMID [Suspect]
     Active Substance: LENALIDOMIDE
     Indication: PLASMA CELL MYELOMA
     Dosage: 20 MILLIGRAM
     Route: 048
     Dates: start: 201209

REACTIONS (5)
  - Lymphadenopathy [Unknown]
  - Tension headache [Unknown]
  - Pruritus [Unknown]
  - Rash macular [Unknown]
  - Rash erythematous [Unknown]

NARRATIVE: CASE EVENT DATE: 20161216
